FAERS Safety Report 9192774 (Version 1)
Quarter: 2013Q1

REPORT INFORMATION
  Report Type: Spontaneous
  Country: US (occurrence: None)
  Receive Date: 20130325
  Receipt Date: 20130325
  Transmission Date: 20140127
  Serious: Yes (Hospitalization)
  Sender: FDA-Public Use
  Company Number: FK201300823

PATIENT
  Age: 78 Year
  Sex: Male

DRUGS (2)
  1. VANCOMYCIN [Suspect]
     Indication: OSTEOMYELITIS
  2. ZOSYN [Suspect]
     Indication: OSTEOMYELITIS

REACTIONS (3)
  - Pleural effusion [None]
  - Drug hypersensitivity [None]
  - Drug eruption [None]
